FAERS Safety Report 6933522-X (Version None)
Quarter: 2010Q3

REPORT INFORMATION
  Report Type: 
  Country: None (occurrence: None)
  Receive Date: 20100820
  Receipt Date: 20100813
  Transmission Date: 20110219
  Serious: Yes (Hospitalization, Other)
  Sender: FDA-Public Use
  Company Number: FR-BRISTOL-MYERS SQUIBB COMPANY-14279111

PATIENT
  Age: 55 Year
  Sex: Male

DRUGS (4)
  1. REYATAZ [Suspect]
     Indication: HIV INFECTION
     Dates: end: 20080327
  2. NORVIR [Suspect]
     Indication: HIV INFECTION
  3. KIVEXA [Suspect]
     Indication: HIV INFECTION
     Dosage: 1 DOSAGE FORM = 1(UNITS NOT SPECIFIED)
  4. ENALAPRIL MALEATE [Suspect]

REACTIONS (2)
  - NEPHROLITHIASIS [None]
  - POSTRENAL FAILURE [None]
